FAERS Safety Report 26116758 (Version 1)
Quarter: 2025Q4

REPORT INFORMATION
  Report Type: Spontaneous
  Country: EU (occurrence: EU)
  Receive Date: 20251203
  Receipt Date: 20251203
  Transmission Date: 20260118
  Serious: Yes (Life-Threatening, Other)
  Sender: CHEPLAPHARM
  Company Number: None

PATIENT
  Age: 22 Year
  Sex: Male

DRUGS (7)
  1. CLONAZEPAM [Suspect]
     Active Substance: CLONAZEPAM
  2. CANNABIS SATIVA SUBSP. INDICA TOP [Suspect]
     Active Substance: CANNABIS SATIVA SUBSP. INDICA TOP
  3. COCAINE [Suspect]
     Active Substance: COCAINE
  4. MIDOMAFETAMINE [Suspect]
     Active Substance: MIDOMAFETAMINE
  5. CETIRIZINE HYDROCHLORIDE [Suspect]
     Active Substance: CETIRIZINE HYDROCHLORIDE
  6. TRAMADOL HYDROCHLORIDE [Suspect]
     Active Substance: TRAMADOL HYDROCHLORIDE
  7. OXAZEPAM [Suspect]
     Active Substance: OXAZEPAM

REACTIONS (4)
  - Coma [Recovered/Resolved]
  - Miosis [Recovered/Resolved]
  - Drug use disorder [Unknown]
  - Haematoma [Unknown]

NARRATIVE: CASE EVENT DATE: 20250705
